FAERS Safety Report 5419547-4 (Version None)
Quarter: 2007Q3

REPORT INFORMATION
  Report Type: 
  Country: None (occurrence: None)
  Receive Date: 20070820
  Receipt Date: 20070808
  Transmission Date: 20080115
  Serious: Yes (Hospitalization)
  Sender: FDA-Public Use
  Company Number: GB-ROCHE-510853

PATIENT
  Age: 61 Year
  Weight: 48 kg

DRUGS (2)
  1. CAPECITABINE [Suspect]
     Indication: BREAST CANCER
     Dosage: FOR 14 DAYS EVERY 3 WEEKS FOR 4 CYCLES (AS PER PROTOCOL).
     Route: 048
     Dates: end: 20070710
  2. EPIRUBICIN [Suspect]
     Indication: BREAST CANCER
     Dosage: FOR 4 CYCLES (AS PER PROTOCOL).
     Route: 042
     Dates: start: 20070501

REACTIONS (5)
  - BLOOD MAGNESIUM DECREASED [None]
  - BLOOD POTASSIUM DECREASED [None]
  - BLOOD SODIUM DECREASED [None]
  - FATIGUE [None]
  - VOMITING [None]
